FAERS Safety Report 13044922 (Version 1)
Quarter: 2016Q4

REPORT INFORMATION
  Report Type: Report from Study
  Country: None (occurrence: US)
  Receive Date: 20161220
  Receipt Date: 20161220
  Transmission Date: 20170207
  Serious: Yes (Other)
  Sender: FDA-Public Use
  Company Number: US-ABBVIE-16K-163-1802460-00

PATIENT
  Sex: Male
  Weight: 81.72 kg

DRUGS (2)
  1. VITAMIN B12 [Concomitant]
     Active Substance: CYANOCOBALAMIN
     Indication: VITAMIN SUPPLEMENTATION
  2. HUMIRA [Suspect]
     Active Substance: ADALIMUMAB
     Indication: CROHN^S DISEASE
     Route: 058
     Dates: start: 201507, end: 201611

REACTIONS (4)
  - Impaired healing [Unknown]
  - Anal fistula [Unknown]
  - Proctalgia [Not Recovered/Not Resolved]
  - Fistula inflammation [Not Recovered/Not Resolved]

NARRATIVE: CASE EVENT DATE: 2016
